FAERS Safety Report 9749394 (Version 1)
Quarter: 2013Q4

REPORT INFORMATION
  Report Type: Report from Study
  Country: US (occurrence: US)
  Receive Date: 20131212
  Receipt Date: 20131212
  Transmission Date: 20140711
  Serious: Yes (Other)
  Sender: FDA-Public Use
  Company Number: US-JNJFOC-20131203138

PATIENT
  Sex: Male
  Weight: 92.53 kg

DRUGS (11)
  1. REMICADE [Suspect]
     Indication: CROHN^S DISEASE
     Route: 042
     Dates: start: 2005
  2. REMICADE [Suspect]
     Indication: CROHN^S DISEASE
     Route: 042
     Dates: start: 2011, end: 2011
  3. HUMIRA [Suspect]
     Indication: CROHN^S DISEASE
     Route: 065
     Dates: start: 201311
  4. HUMIRA [Suspect]
     Indication: CROHN^S DISEASE
     Route: 065
     Dates: start: 2011, end: 201303
  5. BENADRYL [Concomitant]
     Indication: PREMEDICATION
     Route: 065
     Dates: start: 2011
  6. TYLENOL [Concomitant]
     Indication: PREMEDICATION
     Route: 065
     Dates: start: 2011
  7. LANSOPRAZOLE [Concomitant]
     Indication: GASTROOESOPHAGEAL REFLUX DISEASE
     Dosage: START DATE: 2003 OR 2004
     Route: 048
  8. FLEXERIL [Concomitant]
     Indication: SLEEP DISORDER
     Dosage: START DATE: 2003 OR 2004
     Route: 048
  9. VICODIN [Concomitant]
     Indication: PAIN
     Route: 048
     Dates: start: 2003
  10. KLONOPIN [Concomitant]
     Indication: STRESS
     Route: 048
     Dates: start: 2003
  11. GABAPENTIN [Concomitant]
     Indication: OSTEOARTHRITIS
     Route: 048
     Dates: start: 20031204

REACTIONS (8)
  - Hernia [Recovered/Resolved]
  - Lung disorder [Recovered/Resolved]
  - Infusion related reaction [Recovered/Resolved]
  - Dyspnoea [Recovered/Resolved]
  - Drug ineffective [Recovered/Resolved]
  - Urticaria [Recovered/Resolved]
  - Disorientation [Recovered/Resolved]
  - Cough [Recovered/Resolved]
